FAERS Safety Report 6756522-1 (Version None)
Quarter: 2010Q2

REPORT INFORMATION
  Report Type: 
  Country: None (occurrence: None)
  Receive Date: 20100604
  Receipt Date: 20100525
  Transmission Date: 20101027
  Serious: Yes (Hospitalization)
  Sender: FDA-Public Use
  Company Number: B0658323A

PATIENT
  Sex: Male

DRUGS (1)
  1. AVODART [Suspect]

REACTIONS (2)
  - BLADDER OBSTRUCTION [None]
  - THERAPY CESSATION [None]
